FAERS Safety Report 13594366 (Version 5)
Quarter: 2018Q2

REPORT INFORMATION
  Report Type: Spontaneous
  Country: US (occurrence: US)
  Receive Date: 20170530
  Receipt Date: 20180523
  Transmission Date: 20180711
  Serious: No
  Sender: FDA-Public Use
  Company Number: US-ACTELION-A-NJ2017-154480

PATIENT
  Age: 78 Year
  Sex: Female
  Weight: 56.69 kg

DRUGS (3)
  1. VELETRI [Suspect]
     Active Substance: EPOPROSTENOL
     Indication: PULMONARY ARTERIAL HYPERTENSION
     Dosage: 40 NG/KG, PER MIN
     Route: 042
  2. WARFARIN [Concomitant]
     Active Substance: WARFARIN
  3. REVATIO [Concomitant]
     Active Substance: SILDENAFIL CITRATE

REACTIONS (8)
  - Dry eye [Unknown]
  - Dyspnoea exertional [Unknown]
  - Nasal dryness [Unknown]
  - Suture rupture [Unknown]
  - Sinusitis [Unknown]
  - Catheter site erythema [Unknown]
  - Pain in jaw [Unknown]
  - Flushing [Unknown]
